FAERS Safety Report 5024182-6 (Version None)
Quarter: 2006Q2

REPORT INFORMATION
  Report Type: 
  Country: None (occurrence: None)
  Receive Date: 20060607
  Receipt Date: 20060517
  Transmission Date: 20061013
  Serious: Yes (Death)
  Sender: FDA-Public Use
  Company Number: CA200603004195

PATIENT
  Age: 64 Year
  Sex: Male

DRUGS (23)
  1. FORTEO [Suspect]
     Indication: OSTEOPOROSIS
     Dosage: 20 UG, DAILY (1/D), SUBCUTANEOUS
     Route: 058
     Dates: start: 20060131
  2. DIPROSONE [Concomitant]
  3. CLOTRIMADERM             (CLOTRIMAZOLE) [Concomitant]
  4. ACETAMINOPHEN [Concomitant]
  5. MOTILIUM [Concomitant]
  6. TENORMIN [Concomitant]
  7. HYDRODIURIL [Concomitant]
  8. LIPIDIL [Concomitant]
  9. CALCIUM           (CALCIUM) [Concomitant]
  10. HYDROMORPHONE HCL [Concomitant]
  11. ALTACE [Concomitant]
  12. ASAPHEN                     (ACETYLSALICYLIC ACID) [Concomitant]
  13. NITRO-DUR [Concomitant]
  14. ZYLOPRIM [Concomitant]
  15. MOBIC [Concomitant]
  16. PULMICORT [Concomitant]
  17. BRICANYL [Concomitant]
  18. ZANTAC [Concomitant]
  19. PREVACID [Concomitant]
  20. CITALOPRAM HYDROBROMIDE [Concomitant]
  21. CARDIAZEM (DILTIAZEM) [Concomitant]
  22. FLOMAX [Concomitant]
  23. FORTEO PEN                          (FORTEO PEN) [Concomitant]

REACTIONS (2)
  - MYOCARDIAL INFARCTION [None]
  - RASH ERYTHEMATOUS [None]
